FAERS Safety Report 8617117-8 (Version None)
Quarter: 2012Q3

REPORT INFORMATION
  Report Type: 
  Country: None (occurrence: None)
  Receive Date: 20120823
  Receipt Date: 20120820
  Transmission Date: 20120928
  Serious: No
  Sender: FDA-Public Use
  Company Number: US-PFIZER INC-2012204016

PATIENT
  Age: 6 Year
  Sex: Male
  Weight: 14.966 kg

DRUGS (2)
  1. GENOTROPIN [Suspect]
     Dosage: 0.6 MG, WEEKLY (7 DAYS PER WEEK)
     Route: 058
  2. MULTI-VITAMINS [Concomitant]

REACTIONS (1)
  - INJECTION SITE PAIN [None]
